FAERS Safety Report 8054237-3 (Version None)
Quarter: 2012Q1

REPORT INFORMATION
  Report Type: 
  Country: None (occurrence: None)
  Receive Date: 20120118
  Receipt Date: 20120106
  Transmission Date: 20120608
  Serious: Yes (Other)
  Sender: FDA-Public Use
  Company Number: US-ROCHE-1020720

PATIENT
  Sex: Female
  Weight: 46.762 kg

DRUGS (50)
  1. FOSAMAX [Suspect]
     Dates: start: 20080319, end: 20080429
  2. FOSAMAX [Suspect]
     Dates: start: 20080618, end: 20080724
  3. LEVETIRACETAM [Concomitant]
     Dates: start: 20110518, end: 20110530
  4. LEVOTHYROXINE SODIUM [Concomitant]
     Dates: start: 20111109
  5. POTASSIUM CHLORIDE [Concomitant]
     Dates: start: 20110608, end: 20111130
  6. POTASSIUM CHLORIDE [Concomitant]
     Dates: start: 20111109
  7. FOSAMAX [Suspect]
     Dates: start: 20070216, end: 20070531
  8. EUCERIN LOTION [Concomitant]
     Indication: DRY SKIN
     Route: 061
     Dates: start: 20090429
  9. METOCLOPRAMIDE [Concomitant]
     Indication: VOMITING
     Dates: start: 20110902, end: 20111130
  10. BONIVA [Suspect]
     Indication: OSTEOPOROSIS
     Route: 042
     Dates: start: 20090616, end: 20091120
  11. BONIVA [Suspect]
     Dates: start: 20110518
  12. FOSAMAX [Suspect]
     Dates: start: 20091213, end: 20100519
  13. FIBER LAXATIVE [Concomitant]
     Indication: CONSTIPATION
     Dates: start: 20110519
  14. FLUTIDE NASAL [Concomitant]
     Indication: RHINITIS ALLERGIC
     Route: 045
     Dates: start: 20111102
  15. HYDROCHLOROTHIAZIDE [Concomitant]
     Dates: start: 20110608, end: 20111130
  16. HYDROXYZINE [Concomitant]
     Dates: start: 20111109
  17. LEVETIRACETAM [Concomitant]
  18. LORATADINE [Concomitant]
     Dates: start: 20111109
  19. SIMETHICONE [Concomitant]
     Indication: DYSPHAGIA
     Dates: start: 20090630
  20. VALPROIC ACID [Concomitant]
     Dates: start: 20111109
  21. CALCIUM GLUBIONATE [Concomitant]
     Indication: OSTEOPOROSIS
     Dates: start: 20100506
  22. CLOTRIMAZOLE [Concomitant]
     Dates: start: 20070515
  23. LORATADINE [Concomitant]
     Dates: start: 20111026, end: 20111130
  24. PANTOPRAZOLE [Concomitant]
     Indication: GASTROOESOPHAGEAL REFLUX DISEASE
     Dates: start: 20110823, end: 20111130
  25. PHENYTOIN [Concomitant]
     Indication: CONVULSION
     Dates: start: 20110913, end: 20111130
  26. HYDROCODONE BITARTRATE [Concomitant]
     Indication: PAIN
     Dates: start: 20111117, end: 20111117
  27. BONIVA [Suspect]
     Dates: start: 20100518, end: 20101202
  28. FOSAMAX [Suspect]
     Dates: start: 20050904, end: 20051103
  29. MAGNESIUM OXIDE [Concomitant]
     Dates: start: 20111115
  30. METOCLOPRAMIDE [Concomitant]
     Dates: start: 20111109
  31. PHENYTOIN [Concomitant]
     Dates: start: 20111109
  32. VALPROIC ACID [Concomitant]
     Dates: start: 20110518, end: 20111130
  33. BONIVA [Suspect]
     Dates: start: 20101123, end: 20110526
  34. FOSAMAX [Suspect]
     Dates: start: 20070515, end: 20080107
  35. FOSAMAX [Suspect]
     Dates: start: 20071121, end: 20080611
  36. FOSAMAX [Suspect]
     Dates: start: 20100518, end: 20100611
  37. DOCUSATE SODIUM [Concomitant]
     Indication: CONSTIPATION
     Dates: start: 20110601
  38. HYDROCHLOROTHIAZIDE [Concomitant]
     Dates: start: 20111109
  39. MUPIROCIN [Concomitant]
     Route: 061
     Dates: start: 20110330
  40. VITAMIN D [Concomitant]
     Dates: start: 20110404
  41. FOSAMAX [Suspect]
     Dates: start: 20051110, end: 20060927
  42. FOSAMAX [Suspect]
     Dates: start: 20061004, end: 20061122
  43. FOSAMAX [Suspect]
     Dates: start: 20080618, end: 20090616
  44. LEVOTHYROXINE SODIUM [Concomitant]
     Dates: start: 20110518, end: 20111130
  45. PANTOPRAZOLE [Concomitant]
     Dates: start: 20111109
  46. FOSAMAX [Suspect]
     Indication: OSTEOPOROSIS
     Route: 048
     Dates: start: 20080618, end: 20080724
  47. FOSAMAX [Suspect]
     Dates: start: 20061121, end: 20070228
  48. CEROVITE [Concomitant]
     Dates: start: 20110111
  49. FLUTIDE NASAL [Concomitant]
     Route: 045
     Dates: start: 20111119
  50. HYDROXYZINE [Concomitant]
     Indication: PRURITUS
     Dates: start: 20110518, end: 20111130

REACTIONS (1)
  - FEMUR FRACTURE [None]
